FAERS Safety Report 14304866 (Version 1)
Quarter: 2017Q4

REPORT INFORMATION
  Report Type: Spontaneous
  Country: JP (occurrence: JP)
  Receive Date: 20171219
  Receipt Date: 20171219
  Transmission Date: 20180321
  Serious: Yes (Life-Threatening, Other)
  Sender: FDA-Public Use
  Company Number: JP-OTSUKA-JP-2012-10385

PATIENT
  Age: 70 Year
  Sex: Male
  Weight: 43 kg

DRUGS (5)
  1. SEROQUEL [Concomitant]
     Active Substance: QUETIAPINE FUMARATE
     Indication: PRODUCT USED FOR UNKNOWN INDICATION
     Dosage: 100MG-200MG, QD
     Route: 048
     Dates: start: 20111007, end: 20120214
  2. ABILIFY [Suspect]
     Active Substance: ARIPIPRAZOLE
     Dosage: 6-30MG, QD
     Route: 048
     Dates: start: 20110128, end: 20111221
  3. ABILIFY [Suspect]
     Active Substance: ARIPIPRAZOLE
     Indication: SCHIZOPHRENIA
     Dosage: 6-12MG, QD
     Route: 048
     Dates: start: 20101027, end: 20110106
  4. LONASEN [Concomitant]
     Active Substance: BLONANSERIN
     Dosage: UNK
     Route: 048
     Dates: start: 20111218
  5. LONASEN [Concomitant]
     Active Substance: BLONANSERIN
     Indication: PRODUCT USED FOR UNKNOWN INDICATION
     Dosage: 8-12MG, BID
     Route: 048
     Dates: start: 20110304, end: 20111006

REACTIONS (4)
  - Pneumonia [Recovered/Resolved]
  - Nephrotic syndrome [Recovering/Resolving]
  - Dysphagia [Unknown]
  - Anaemia [Unknown]

NARRATIVE: CASE EVENT DATE: 201110
